FAERS Safety Report 4748658-1 (Version None)
Quarter: 2005Q3

REPORT INFORMATION
  Report Type: 
  Country: None (occurrence: None)
  Receive Date: 20050819
  Receipt Date: 20050613
  Transmission Date: 20060218
  Serious: Yes (Other)
  Sender: FDA-Public Use
  Company Number: PHEH2005US06693

PATIENT
  Age: 81 Year
  Sex: Male

DRUGS (2)
  1. ELIDEL [Suspect]
     Dosage: UNK, PRN
     Route: 061
  2. PLAVIX [Concomitant]
     Indication: CEREBROVASCULAR ACCIDENT
     Dosage: 75 MG, UNK

REACTIONS (2)
  - SKIN NEOPLASM EXCISION [None]
  - SUPERFICIAL SPREADING MELANOMA STAGE UNSPECIFIED [None]
